FAERS Safety Report 21332328 (Version 2)
Quarter: 2022Q3

REPORT INFORMATION
  Report Type: Report from Study
  Country: CA (occurrence: CA)
  Receive Date: 20220914
  Receipt Date: 20220928
  Transmission Date: 20221027
  Serious: Yes (Other)
  Sender: FDA-Public Use
  Company Number: CA-BRISTOL-MYERS SQUIBB COMPANY-2022-091515

PATIENT
  Age: 83 Year
  Sex: Male

DRUGS (2)
  1. REBLOZYL [Suspect]
     Active Substance: LUSPATERCEPT-AAMT
     Indication: Myelodysplastic syndrome
     Route: 065
  2. REBLOZYL [Suspect]
     Active Substance: LUSPATERCEPT-AAMT
     Route: 058
     Dates: start: 20211022

REACTIONS (3)
  - Hypertonic bladder [Recovering/Resolving]
  - Balance disorder [Recovering/Resolving]
  - Weight decreased [Recovering/Resolving]
